FAERS Safety Report 10090207 (Version 1)
Quarter: 2014Q2

REPORT INFORMATION
  Report Type: Spontaneous
  Country: CN (occurrence: CN)
  Receive Date: 20140421
  Receipt Date: 20140421
  Transmission Date: 20141212
  Serious: Yes (Life-Threatening)
  Sender: FDA-Public Use
  Company Number: CN-BRACCO-000869

PATIENT
  Age: 66 Year
  Sex: Male
  Weight: 42 kg

DRUGS (1)
  1. IOPAMIDOL [Suspect]
     Indication: ANGIOGRAM
     Route: 013
     Dates: start: 20130702, end: 20130702

REACTIONS (3)
  - Cardiac failure acute [Recovering/Resolving]
  - Somnolence [Recovering/Resolving]
  - Contrast encephalopathy [Recovering/Resolving]
